FAERS Safety Report 10284796 (Version 1)
Quarter: 2014Q3

REPORT INFORMATION
  Report Type: Spontaneous
  Country: CA (occurrence: CA)
  Receive Date: 20140708
  Receipt Date: 20140708
  Transmission Date: 20150326
  Serious: Yes (Other)
  Sender: FDA-Public Use
  Company Number: CA-BAYER-2014-098681

PATIENT
  Age: 30 Year
  Sex: Female
  Weight: 48.98 kg

DRUGS (1)
  1. PRIMOVIST [Suspect]
     Active Substance: GADOXETATE DISODIUM
     Indication: NUCLEAR MAGNETIC RESONANCE IMAGING
     Dosage: 10 ML, ONCE
     Route: 042
     Dates: start: 20140626, end: 20140626

REACTIONS (2)
  - Chest discomfort [None]
  - Erythema [None]

NARRATIVE: CASE EVENT DATE: 20140626
